FAERS Safety Report 23195725 (Version 1)
Quarter: 2023Q4

REPORT INFORMATION
  Report Type: Spontaneous
  Country: CN (occurrence: CN)
  Receive Date: 20231117
  Receipt Date: 20231117
  Transmission Date: 20240110
  Serious: Yes (Hospitalization)
  Sender: FDA-Public Use
  Company Number: CN-CHEPLA-2023014408

PATIENT
  Age: 62 Year
  Sex: Male
  Weight: 60 kg

DRUGS (3)
  1. CAPECITABINE [Suspect]
     Active Substance: CAPECITABINE
     Indication: Gastric cancer
     Dosage: BID??DAILY DOSE: 3 GRAM
     Route: 048
     Dates: start: 20230925, end: 20231008
  2. CAMRELIZUMAB [Suspect]
     Active Substance: CAMRELIZUMAB
     Indication: Gastric cancer
     Dosage: ROA: IV DRIP?DAILY DOSE: 200 MILLIGRAM
     Route: 042
     Dates: start: 20230925, end: 20230925
  3. OXALIPLATIN [Suspect]
     Active Substance: OXALIPLATIN
     Indication: Gastric cancer
     Dosage: ROA: IV DRIP?DAILY DOSE: 225 MILLIGRAM
     Route: 042
     Dates: start: 20230925, end: 20230925

REACTIONS (4)
  - Nausea [Recovering/Resolving]
  - Decreased appetite [Recovering/Resolving]
  - Vomiting [Recovering/Resolving]
  - Inadequate diet [Recovering/Resolving]

NARRATIVE: CASE EVENT DATE: 20231015
